FAERS Safety Report 7085442-0 (Version None)
Quarter: 2010Q4

REPORT INFORMATION
  Report Type: 
  Country: None (occurrence: None)
  Receive Date: 20101105
  Receipt Date: 20101102
  Transmission Date: 20110411
  Serious: Yes (Death)
  Sender: FDA-Public Use
  Company Number: SG-PFIZER INC-2006056130

PATIENT
  Age: 38 Year
  Sex: Female

DRUGS (20)
  1. SUNITINIB MALATE [Suspect]
     Indication: GASTROINTESTINAL STROMAL TUMOUR
     Dosage: 37.5 MG, 1X/DAY
     Route: 048
     Dates: start: 20051014, end: 20060207
  2. SUNITINIB MALATE [Suspect]
     Dosage: 25 MG, 1X/DAY
     Route: 048
     Dates: start: 20060221, end: 20060422
  3. CELEBREX [Concomitant]
     Route: 048
     Dates: start: 20040826, end: 20060421
  4. OMEPRAZOLE [Concomitant]
     Dosage: UNK
     Route: 048
     Dates: start: 20050203, end: 20050422
  5. RAMIPRIL [Concomitant]
     Route: 048
     Dates: start: 20050301, end: 20060421
  6. SANGOBION [Concomitant]
     Route: 048
     Dates: start: 20060401, end: 20060422
  7. ATENOLOL [Concomitant]
     Route: 048
     Dates: start: 20050412, end: 20060323
  8. DOMPERIDONE [Concomitant]
     Route: 048
     Dates: end: 20060419
  9. FRUSEMIDE [Concomitant]
     Route: 048
     Dates: start: 20060109, end: 20060415
  10. AZUNOL [Concomitant]
     Route: 061
     Dates: start: 20051117
  11. GENTAMICIN [Concomitant]
     Route: 061
     Dates: start: 20051117
  12. KETOPROFEN [Concomitant]
     Route: 048
  13. ISODINE [Concomitant]
     Route: 048
  14. MULTI-VITAMINS [Concomitant]
     Route: 048
     Dates: start: 20060218, end: 20060422
  15. ACETAMINOPHEN AND CODEINE PHOSPHATE [Concomitant]
     Route: 048
     Dates: start: 20060220
  16. DISFLATYL [Concomitant]
     Route: 048
     Dates: start: 20060117, end: 20060422
  17. LOXONIN [Concomitant]
     Route: 048
     Dates: start: 20060325, end: 20060409
  18. VOLTAREN [Concomitant]
     Route: 048
     Dates: start: 20060326, end: 20060422
  19. CODEINE PHOSPHATE [Concomitant]
     Route: 048
     Dates: start: 20060328, end: 20060422
  20. FERROUS FUMARATE [Concomitant]
     Route: 048
     Dates: start: 20060329

REACTIONS (5)
  - ANAEMIA [None]
  - DISEASE PROGRESSION [None]
  - DISSEMINATED INTRAVASCULAR COAGULATION [None]
  - GASTROINTESTINAL STROMAL TUMOUR [None]
  - SHOCK HAEMORRHAGIC [None]
